FAERS Safety Report 25726951 (Version 1)
Quarter: 2025Q3

REPORT INFORMATION
  Report Type: Spontaneous
  Country: US (occurrence: None)
  Receive Date: 20250825
  Receipt Date: 20250825
  Transmission Date: 20251020
  Serious: Yes (Other)
  Sender: FDA-CTU
  Company Number: None

PATIENT
  Age: 68 Year
  Sex: Female
  Weight: 113.85 kg

DRUGS (4)
  1. ELIQUIS [Suspect]
     Active Substance: APIXABAN
  2. VALSARTAN [Suspect]
     Active Substance: VALSARTAN
  3. PFIZER-BIONTECH COVID-19 VACCINE [Suspect]
     Active Substance: TOZINAMERAN
  4. 10k of vit D3 daily [Concomitant]

REACTIONS (10)
  - Vomiting [None]
  - Musculoskeletal stiffness [None]
  - Flank pain [None]
  - Gait disturbance [None]
  - Gout [None]
  - Serum ferritin increased [None]
  - Eye disorder [None]
  - Headache [None]
  - Hyperaesthesia teeth [None]
  - Atrial fibrillation [None]

NARRATIVE: CASE EVENT DATE: 20250215
